FAERS Safety Report 4481384-5 (Version None)
Quarter: 2004Q4

REPORT INFORMATION
  Report Type: 
  Country: None (occurrence: None)
  Receive Date: 20040923
  Receipt Date: 20040707
  Transmission Date: 20050328
  Serious: No
  Sender: FDA-Public Use
  Company Number: USA031153484

PATIENT
  Age: 83 Year
  Sex: Female

DRUGS (6)
  1. FORTEO [Suspect]
     Indication: OSTEOPOROSIS
     Dosage: 20 UG DAY
     Dates: start: 20031117
  2. PLAVIX [Concomitant]
  3. THYROID TAB [Concomitant]
  4. LIPITOR [Concomitant]
  5. DILTIAZEM [Concomitant]
  6. MULTI-VITAMIN [Concomitant]

REACTIONS (6)
  - CYSTITIS [None]
  - INJECTION SITE INDURATION [None]
  - INJECTION SITE SWELLING [None]
  - MUSCLE CRAMP [None]
  - NAIL RIDGING [None]
  - ONYCHORRHEXIS [None]
